FAERS Safety Report 4994316-8 (Version None)
Quarter: 2006Q2

REPORT INFORMATION
  Report Type: 
  Country: None (occurrence: None)
  Receive Date: 20060503
  Receipt Date: 20060426
  Transmission Date: 20061013
  Serious: Yes (Hospitalization)
  Sender: FDA-Public Use
  Company Number: DE200604004336

PATIENT
  Sex: Female

DRUGS (1)
  1. YENTREVE [Suspect]
     Indication: STRESS INCONTINENCE
     Dosage: 20 MG, 2/D, ORAL
     Route: 048

REACTIONS (2)
  - CARDIOVASCULAR DISORDER [None]
  - NAUSEA [None]
